FAERS Safety Report 19111134 (Version 6)
Quarter: 2022Q4

REPORT INFORMATION
  Report Type: Spontaneous
  Country: US (occurrence: US)
  Receive Date: 20210408
  Receipt Date: 20221010
  Transmission Date: 20230113
  Serious: Yes (Other)
  Sender: FDA-Public Use
  Company Number: US-PFIZER INC-2021201184

PATIENT
  Age: 73 Year
  Sex: Female

DRUGS (3)
  1. IBRANCE [Suspect]
     Active Substance: PALBOCICLIB
     Dosage: 100 MG
     Dates: start: 20200521, end: 20210702
  2. IBRANCE [Suspect]
     Active Substance: PALBOCICLIB
     Dosage: 75 MG
     Dates: start: 20210705, end: 202111
  3. IBRANCE [Suspect]
     Active Substance: PALBOCICLIB
     Dosage: DOSE REDUCED
     Dates: start: 202111

REACTIONS (7)
  - Neutropenia [Unknown]
  - Product dose omission issue [Unknown]
  - White blood cell count decreased [Unknown]
  - Cancer fatigue [Unknown]
  - Immune system disorder [Unknown]
  - Arthritis [Unknown]
  - Fatigue [Not Recovered/Not Resolved]
